FAERS Safety Report 19949505 (Version 2)
Quarter: 2021Q4

REPORT INFORMATION
  Report Type: Report from Study
  Country: US (occurrence: US)
  Receive Date: 20211013
  Receipt Date: 20211018
  Transmission Date: 20220303
  Serious: No
  Sender: FDA-Public Use
  Company Number: NVSC2021US234002

PATIENT
  Age: 77 Year
  Sex: Female

DRUGS (1)
  1. BEOVU [Suspect]
     Active Substance: BROLUCIZUMAB-DBLL
     Indication: Neovascular age-related macular degeneration
     Dosage: FREQUENCY AS DIRECTED
     Route: 047
     Dates: start: 20210801

REACTIONS (2)
  - Metamorphopsia [Unknown]
  - Visual impairment [Unknown]

NARRATIVE: CASE EVENT DATE: 20210801
